FAERS Safety Report 6994462-3 (Version None)
Quarter: 2010Q3

REPORT INFORMATION
  Report Type: 
  Country: None (occurrence: None)
  Receive Date: 20100917
  Receipt Date: 20100907
  Transmission Date: 20110219
  Serious: Yes (Other)
  Sender: FDA-Public Use
  Company Number: JP-JNJFOC-20100904355

PATIENT
  Sex: Female

DRUGS (5)
  1. CRAVIT [Suspect]
     Indication: URINARY TRACT INFECTION
     Dosage: 3 DAYS
     Route: 048
  2. LOXONIN [Concomitant]
     Indication: URINARY TRACT INFECTION
     Dosage: 180 MG, 2 DAYS
     Route: 048
  3. OLMETEC [Concomitant]
     Indication: HYPERTENSION
     Route: 048
  4. ALDACTONE [Concomitant]
     Indication: CARDIAC FAILURE
     Route: 048
  5. PURSENNID [Concomitant]
     Indication: CONSTIPATION
     Route: 048

REACTIONS (3)
  - ACTIVITIES OF DAILY LIVING IMPAIRED [None]
  - INSOMNIA [None]
  - PETIT MAL EPILEPSY [None]
